FAERS Safety Report 6988904-7 (Version None)
Quarter: 2010Q3

REPORT INFORMATION
  Report Type: 
  Country: None (occurrence: None)
  Receive Date: 20100916
  Receipt Date: 20090527
  Transmission Date: 20110219
  Serious: Yes (Other)
  Sender: FDA-Public Use
  Company Number: GB-PFIZER INC-2009218715

PATIENT
  Age: 51 Year
  Sex: Female

DRUGS (5)
  1. LYRICA [Suspect]
     Dosage: 25 MG, 2X/DAY
  2. CIPROFLOXACIN HCL [Interacting]
  3. LAMOTRIGINE [Concomitant]
  4. PHENYTOIN SODIUM CAP [Concomitant]
  5. KEPPRA [Concomitant]

REACTIONS (2)
  - DRUG INTERACTION [None]
  - EPILEPSY [None]
